FAERS Safety Report 21366815 (Version 1)
Quarter: 2022Q3

REPORT INFORMATION
  Report Type: Report from Study
  Country: US (occurrence: US)
  Receive Date: 20220923
  Receipt Date: 20220923
  Transmission Date: 20221026
  Serious: Yes (Death, Life-Threatening, Hospitalization)
  Sender: FDA-Public Use
  Company Number: US-NOVARTISPH-NVSC2021US173791

PATIENT
  Age: 84 Year
  Sex: Female
  Weight: 75.9 kg

DRUGS (31)
  1. SCEMBLIX [Suspect]
     Active Substance: ASCIMINIB HYDROCHLORIDE
     Indication: Chronic myeloid leukaemia
     Dosage: 80 MG, QD
     Route: 048
     Dates: start: 20210721, end: 20210729
  2. LEVOPHED [Concomitant]
     Active Substance: NOREPINEPHRINE BITARTRATE
     Indication: Cardiac failure congestive
     Dosage: UNK
     Route: 065
     Dates: start: 20210730, end: 20210802
  3. CORDARONE [Concomitant]
     Active Substance: AMIODARONE HYDROCHLORIDE
     Indication: Atrial fibrillation
     Dosage: UNK
     Route: 065
     Dates: start: 20210730, end: 20210730
  4. CORDARONE [Concomitant]
     Active Substance: AMIODARONE HYDROCHLORIDE
     Dosage: UNK
     Route: 065
     Dates: start: 20210730, end: 20210801
  5. SUBLIMAZE [Concomitant]
     Active Substance: FENTANYL CITRATE
     Indication: Sedative therapy
     Dosage: UNK
     Route: 065
     Dates: start: 20210730, end: 20210730
  6. SUBLIMAZE [Concomitant]
     Active Substance: FENTANYL CITRATE
     Dosage: UNK
     Route: 065
     Dates: start: 20210801
  7. DILAUDID [Concomitant]
     Active Substance: HYDROMORPHONE HYDROCHLORIDE
     Indication: Angina pectoris
     Dosage: UNK
     Route: 065
     Dates: start: 20210730, end: 20210730
  8. ISOVUE 370 [Concomitant]
     Active Substance: IOPAMIDOL
     Indication: Computerised tomogram thorax
     Dosage: UNK
     Route: 065
     Dates: start: 20210730, end: 20210730
  9. MORPHINE [Concomitant]
     Active Substance: MORPHINE
     Indication: Angina pectoris
     Dosage: UNK
     Route: 065
     Dates: start: 20210730, end: 20210730
  10. SYNTHROID [Concomitant]
     Active Substance: LEVOTHYROXINE SODIUM
     Indication: Hypothyroidism
     Dosage: UNK
     Route: 065
     Dates: start: 2010, end: 20210802
  11. SODIUM CHLORIDE [Concomitant]
     Active Substance: SODIUM CHLORIDE
     Indication: Supportive care
     Dosage: UNK
     Route: 065
     Dates: start: 20210730, end: 20210730
  12. SODIUM CHLORIDE [Concomitant]
     Active Substance: SODIUM CHLORIDE
     Indication: Acute kidney injury
     Dosage: UNK
     Route: 065
     Dates: start: 20210730, end: 20210802
  13. SODIUM CHLORIDE [Concomitant]
     Active Substance: SODIUM CHLORIDE
     Indication: Hypotension
  14. ZOFRAN [Concomitant]
     Active Substance: ONDANSETRON HYDROCHLORIDE
     Indication: Nausea
     Dosage: UNK
     Route: 065
     Dates: start: 20210730, end: 20210801
  15. ZOFRAN [Concomitant]
     Active Substance: ONDANSETRON HYDROCHLORIDE
     Indication: Vomiting
  16. TYLENOL [Concomitant]
     Active Substance: ACETAMINOPHEN
     Indication: Angina pectoris
     Dosage: UNK
     Route: 065
     Dates: start: 20210730, end: 20210730
  17. ALBUTEROL SULFATE [Concomitant]
     Active Substance: ALBUTEROL SULFATE
     Indication: Prophylaxis against bronchospasm
     Dosage: UNK
     Route: 065
     Dates: start: 20210801, end: 20210802
  18. MAALOX ANTACID [Concomitant]
     Active Substance: ALUMINUM HYDROXIDE\DIMETHICONE\MAGNESIUM HYDROXIDE
     Indication: Analgesic therapy
     Dosage: UNK
     Route: 065
     Dates: start: 20210801, end: 20210801
  19. LANOXIN [Concomitant]
     Active Substance: DIGOXIN
     Indication: Atrial fibrillation
     Dosage: UNK
     Route: 065
     Dates: start: 20210801, end: 20210802
  20. AMIDATE [Concomitant]
     Active Substance: ETOMIDATE
     Indication: Sedative therapy
     Dosage: UNK
     Route: 065
     Dates: start: 20210801, end: 20210801
  21. FENTANYL [Concomitant]
     Active Substance: FENTANYL
     Indication: Sedative therapy
     Dosage: UNK
     Route: 065
     Dates: start: 20210801
  22. FUROSEMIDE [Concomitant]
     Active Substance: FUROSEMIDE
     Indication: Cardiac failure congestive
     Dosage: UNK
     Route: 065
     Dates: start: 20210801, end: 20210801
  23. ATROVENT HFA [Concomitant]
     Active Substance: IPRATROPIUM BROMIDE
     Indication: Prophylaxis against bronchospasm
     Dosage: UNK
     Route: 065
     Dates: start: 20210801
  24. DUONEB [Concomitant]
     Active Substance: ALBUTEROL SULFATE\IPRATROPIUM BROMIDE
     Indication: Prophylaxis against bronchospasm
     Dosage: UNK
     Route: 065
     Dates: start: 20210801, end: 20210801
  25. ATIVAN [Concomitant]
     Active Substance: LORAZEPAM
     Indication: Sedative therapy
     Dosage: UNK
     Route: 065
     Dates: start: 20210801, end: 20210801
  26. REGLAN [Concomitant]
     Active Substance: METOCLOPRAMIDE HYDROCHLORIDE
     Indication: Prophylaxis
     Dosage: UNK
     Route: 065
     Dates: start: 20210801, end: 20210802
  27. VERSED [Concomitant]
     Active Substance: MIDAZOLAM HYDROCHLORIDE
     Indication: Sedative therapy
     Dosage: UNK
     Route: 065
     Dates: start: 20210801, end: 20210801
  28. PROPOFOL [Concomitant]
     Active Substance: PROPOFOL
     Indication: Sedative therapy
     Dosage: UNK
     Route: 065
     Dates: start: 20210801, end: 20210802
  29. XYLOCAINE [Concomitant]
     Active Substance: LIDOCAINE HYDROCHLORIDE
     Indication: Analgesic therapy
     Dosage: UNK
     Route: 065
     Dates: start: 20210801, end: 20210801
  30. DILTIAZEM [Concomitant]
     Active Substance: DILTIAZEM
     Indication: Atrial fibrillation
     Dosage: UNK
     Route: 065
     Dates: start: 20210730, end: 20210730
  31. AMIODARONE [Concomitant]
     Active Substance: AMIODARONE
     Indication: Atrial fibrillation
     Dosage: UNK
     Route: 065
     Dates: start: 20210730, end: 20210730

REACTIONS (4)
  - Myocardial infarction [Recovered/Resolved]
  - Sepsis [Fatal]
  - Respiratory failure [Recovering/Resolving]
  - Acute coronary syndrome [Recovering/Resolving]

NARRATIVE: CASE EVENT DATE: 20210730
